FAERS Safety Report 5598987-7 (Version None)
Quarter: 2008Q1

REPORT INFORMATION
  Report Type: 
  Country: None (occurrence: None)
  Receive Date: 20080122
  Receipt Date: 20071228
  Transmission Date: 20080703
  Serious: No
  Sender: FDA-Public Use
  Company Number: US-BOEHRINGER INGELHEIM PHARMACEUTICALS, INC.-2008-BP-00127BP

PATIENT
  Sex: Male

DRUGS (5)
  1. FLOMAX [Suspect]
     Indication: BENIGN PROSTATIC HYPERPLASIA
     Route: 048
     Dates: start: 20071215, end: 20071227
  2. LOTENSIN [Concomitant]
  3. ACIPHEX [Concomitant]
  4. SULAR [Concomitant]
  5. REGLAN [Concomitant]

REACTIONS (1)
  - BLOOD PRESSURE INCREASED [None]
